FAERS Safety Report 6216420-9 (Version None)
Quarter: 2009Q2

REPORT INFORMATION
  Report Type: 
  Country: None (occurrence: None)
  Receive Date: 20090605
  Receipt Date: 20090601
  Transmission Date: 20091009
  Serious: Yes (Death, Life-Threatening, Hospitalization, Other)
  Sender: FDA-Public Use
  Company Number: GB-ABBOTT-09P-167-0576983-00

PATIENT
  Age: 57 Year
  Sex: Female
  Weight: 100 kg

DRUGS (10)
  1. CLARITHROMYCIN TABLETS [Suspect]
     Indication: PNEUMONIA
     Dates: start: 20090508, end: 20090513
  2. TAZOCIN [Suspect]
     Indication: PNEUMONIA
     Dates: start: 20090513, end: 20090514
  3. PARACETAMOL [Concomitant]
     Indication: DRUG USE FOR UNKNOWN INDICATION
  4. ALBUTEROL [Concomitant]
     Indication: DRUG USE FOR UNKNOWN INDICATION
  5. IPRATROPIUM BROMIDE [Concomitant]
     Indication: DRUG USE FOR UNKNOWN INDICATION
  6. THEOPHYLLINE [Concomitant]
     Indication: DRUG USE FOR UNKNOWN INDICATION
  7. HEPARIN SODIUM [Concomitant]
     Indication: DRUG USE FOR UNKNOWN INDICATION
     Route: 042
  8. LITHIUM [Concomitant]
     Indication: DRUG USE FOR UNKNOWN INDICATION
  9. AMOXICILLIN [Concomitant]
     Indication: DRUG USE FOR UNKNOWN INDICATION
     Dates: end: 20090513
  10. TIGECYCLINE [Concomitant]
     Indication: DRUG USE FOR UNKNOWN INDICATION
     Dosage: STARTED AFTER PIP/TAZO DC'D
     Route: 042

REACTIONS (5)
  - BRONCHOPNEUMONIA [None]
  - HEPATITIS [None]
  - RENAL FAILURE [None]
  - SEPSIS [None]
  - THROMBOCYTOPENIA [None]
